FAERS Safety Report 16346372 (Version 1)
Quarter: 2019Q2

REPORT INFORMATION
  Report Type: Report from Study
  Country: US (occurrence: US)
  Receive Date: 20190523
  Receipt Date: 20190523
  Transmission Date: 20190711
  Serious: Yes (Other)
  Sender: FDA-Public Use
  Company Number: US-TEVA-2019-US-1052766

PATIENT

DRUGS (12)
  1. GUANFACINE. [Suspect]
     Active Substance: GUANFACINE
     Indication: ABNORMAL BEHAVIOUR
     Dosage: 2 MILLIGRAM DAILY; EXTENDED RELEASE
     Route: 065
  2. SERTRALINE [Suspect]
     Active Substance: SERTRALINE HYDROCHLORIDE
     Indication: HYPERAROUSAL
  3. GUANFACINE. [Suspect]
     Active Substance: GUANFACINE
     Indication: HYPERAROUSAL
  4. ARIPIPRAZOLE. [Suspect]
     Active Substance: ARIPIPRAZOLE
     Indication: AGGRESSION
  5. ARIPIPRAZOLE. [Suspect]
     Active Substance: ARIPIPRAZOLE
     Indication: HYPERAROUSAL
  6. LORAZEPAM. [Suspect]
     Active Substance: LORAZEPAM
     Indication: AGGRESSION
  7. ARIPIPRAZOLE. [Suspect]
     Active Substance: ARIPIPRAZOLE
     Indication: ABNORMAL BEHAVIOUR
     Route: 065
  8. SERTRALINE [Suspect]
     Active Substance: SERTRALINE HYDROCHLORIDE
     Indication: ABNORMAL BEHAVIOUR
     Route: 065
  9. LORAZEPAM. [Suspect]
     Active Substance: LORAZEPAM
     Indication: ABNORMAL BEHAVIOUR
     Dosage: 2 MILLIGRAM DAILY;
     Route: 065
  10. GUANFACINE. [Suspect]
     Active Substance: GUANFACINE
     Indication: AGGRESSION
  11. SERTRALINE [Suspect]
     Active Substance: SERTRALINE HYDROCHLORIDE
     Indication: AGGRESSION
  12. LORAZEPAM. [Suspect]
     Active Substance: LORAZEPAM
     Indication: HYPERAROUSAL

REACTIONS (3)
  - Therapy non-responder [Unknown]
  - Agitation [Unknown]
  - Agoraphobia [Unknown]
